FAERS Safety Report 24257142 (Version 1)
Quarter: 2024Q3

REPORT INFORMATION
  Report Type: Spontaneous
  Country: PL (occurrence: PL)
  Receive Date: 20240828
  Receipt Date: 20240828
  Transmission Date: 20241016
  Serious: Yes (Hospitalization, Other)
  Sender: RANBAXY
  Company Number: PL-SUN PHARMACEUTICAL INDUSTRIES LTD-2024R1-464620

PATIENT
  Age: 2 Month
  Sex: Female
  Weight: 3.9 kg

DRUGS (2)
  1. DESMOPRESSIN [Suspect]
     Active Substance: DESMOPRESSIN
     Indication: Diabetes insipidus
     Dosage: 3.8 MICROGRAM/KILOGRAM, DAILY
     Route: 065
  2. DESMOPRESSIN [Suspect]
     Active Substance: DESMOPRESSIN
     Dosage: 1.9 MICROGRAM/KILOGRAM, DAILY
     Route: 065

REACTIONS (2)
  - Oedema [Unknown]
  - Myocardial necrosis marker increased [Unknown]
